FAERS Safety Report 5414989-5 (Version None)
Quarter: 2007Q3

REPORT INFORMATION
  Report Type: 
  Country: None (occurrence: None)
  Receive Date: 20070813
  Receipt Date: 20070727
  Transmission Date: 20080115
  Serious: Yes (Hospitalization)
  Sender: FDA-Public Use
  Company Number: 8025815

PATIENT
  Age: 14 Year
  Sex: Male

DRUGS (1)
  1. EQUASYM [Suspect]
     Dosage: 600 MG ONCE
     Dates: start: 20070601, end: 20070601

REACTIONS (3)
  - ARRHYTHMIA [None]
  - CARDIAC DISORDER [None]
  - OVERDOSE [None]
